FAERS Safety Report 8601300-1 (Version None)
Quarter: 2012Q3

REPORT INFORMATION
  Report Type: 
  Country: None (occurrence: None)
  Receive Date: 20120817
  Receipt Date: 20120808
  Transmission Date: 20120928
  Serious: Yes (Hospitalization, Other)
  Sender: FDA-Public Use
  Company Number: CA-JNJFOC-20120407945

PATIENT
  Sex: Male
  Weight: 93 kg

DRUGS (6)
  1. REMICADE [Suspect]
     Indication: PSORIASIS
     Route: 042
     Dates: start: 20090602
  2. ALL OTHER THERAPEUTICS [Concomitant]
     Route: 048
  3. LAXATIVE [Concomitant]
     Route: 048
  4. PERCOCET [Concomitant]
     Dosage: DOSE: 35/325 MG
     Route: 048
  5. HYDROMORPHONE HYDROCHLORIDE [Concomitant]
     Route: 048
  6. REMICADE [Suspect]
     Route: 042
     Dates: start: 20120101

REACTIONS (5)
  - SWELLING [None]
  - CONTUSION [None]
  - PSORIASIS [None]
  - LOWER LIMB FRACTURE [None]
  - ROAD TRAFFIC ACCIDENT [None]
